FAERS Safety Report 19738541 (Version 1)
Quarter: 2021Q3

REPORT INFORMATION
  Report Type: Spontaneous
  Country: US (occurrence: US)
  Receive Date: 20210821
  Receipt Date: 20210821
  Transmission Date: 20211014
  Serious: Yes (Hospitalization)
  Sender: FDA-Public Use
  Company Number: None

PATIENT
  Sex: Female
  Weight: 76.3 kg

DRUGS (3)
  1. HERCEPTIN [Suspect]
     Active Substance: TRASTUZUMAB
     Dates: end: 20210729
  2. PERTUZUMAB. [Suspect]
     Active Substance: PERTUZUMAB
     Dates: end: 20210729
  3. TAXOL [Suspect]
     Active Substance: PACLITAXEL
     Dates: end: 20210812

REACTIONS (10)
  - Catheter site erythema [None]
  - Pyrexia [None]
  - Swelling [None]
  - Neck pain [None]
  - Catheter site infection [None]
  - Chills [None]
  - Catheter site pain [None]
  - Catheter site discharge [None]
  - Sepsis [None]
  - Clostridium difficile infection [None]

NARRATIVE: CASE EVENT DATE: 20210814
